FAERS Safety Report 4281945-2 (Version None)
Quarter: 2004Q1

REPORT INFORMATION
  Report Type: 
  Country: None (occurrence: None)
  Receive Date: 20040128
  Receipt Date: 20040115
  Transmission Date: 20041129
  Serious: Yes (Hospitalization)
  Sender: FDA-Public Use
  Company Number: 430002X04GBR

PATIENT
  Age: 54 Year
  Sex: Female

DRUGS (1)
  1. NOVANTRONE [Suspect]
     Indication: LYMPHOMA

REACTIONS (10)
  - ABNORMAL BEHAVIOUR [None]
  - DIZZINESS [None]
  - HYPOTENSION [None]
  - IRRITABILITY [None]
  - MENTAL DISORDER [None]
  - MICROANGIOPATHIC HAEMOLYTIC ANAEMIA [None]
  - RASH GENERALISED [None]
  - TACHYCARDIA [None]
  - THROMBOTIC THROMBOCYTOPENIC PURPURA [None]
  - VOMITING [None]
